FAERS Safety Report 16424093 (Version 1)
Quarter: 2019Q2

REPORT INFORMATION
  Report Type: Spontaneous
  Country: US (occurrence: US)
  Receive Date: 20190613
  Receipt Date: 20190613
  Transmission Date: 20190711
  Serious: No
  Sender: FDA-Public Use
  Company Number: US-TEVA-2019-US-1053741

PATIENT
  Sex: Male

DRUGS (1)
  1. HYDROCORTISONE WITH ALOE [Suspect]
     Active Substance: HYDROCORTISONE
     Indication: PRURITUS
     Route: 061

REACTIONS (2)
  - Expired product administered [Unknown]
  - Drug ineffective [Unknown]
